FAERS Safety Report 12394651 (Version 2)
Quarter: 2016Q2

REPORT INFORMATION
  Report Type: Spontaneous
  Country: US (occurrence: US)
  Receive Date: 20160523
  Receipt Date: 20160613
  Transmission Date: 20160815
  Serious: Yes (Death, Hospitalization, Other)
  Sender: FDA-Public Use
  Company Number: US-SMITH AND NEPHEW, INC-2016SMT00417

PATIENT
  Age: 82 Year
  Sex: Female

DRUGS (2)
  1. UNSPECIFIED MEDICATIONS [Concomitant]
     Active Substance: UNSPECIFIED INGREDIENT
  2. REGRANEX [Suspect]
     Active Substance: BECAPLERMIN
     Indication: WOUND
     Dosage: UNK
     Route: 061

REACTIONS (20)
  - Ventricular tachycardia [Fatal]
  - Essential hypertension [Unknown]
  - Atrial fibrillation [Unknown]
  - Aortic stenosis [Unknown]
  - Sinus node dysfunction [Unknown]
  - Ischaemic cardiomyopathy [Fatal]
  - Device capturing issue [Unknown]
  - Myocardial infarction [Unknown]
  - Cardiac failure congestive [Unknown]
  - Encephalopathy [Unknown]
  - Cardiogenic shock [Fatal]
  - Coronary artery disease [Fatal]
  - Hypotension [Unknown]
  - End stage renal disease [Unknown]
  - Hypothyroidism [Unknown]
  - Pulmonary hypertension [Unknown]
  - Mitral valve incompetence [Unknown]
  - Peripheral vascular disorder [Unknown]
  - Left ventricular dysfunction [Unknown]
  - Dyslipidaemia [Unknown]

NARRATIVE: CASE EVENT DATE: 201604
